FAERS Safety Report 13598530 (Version 1)
Quarter: 2017Q2

REPORT INFORMATION
  Report Type: Spontaneous
  Country: CH (occurrence: CH)
  Receive Date: 20170531
  Receipt Date: 20170531
  Transmission Date: 20170830
  Serious: Yes (Death)
  Sender: FDA-Public Use
  Company Number: CH-JNJFOC-20170528253

PATIENT
  Age: 62 Year
  Sex: Male

DRUGS (10)
  1. BILOL [Concomitant]
     Active Substance: BISOPROLOL
     Route: 048
     Dates: start: 20160425
  2. DAFALGAN [Concomitant]
     Active Substance: ACETAMINOPHEN
     Route: 048
     Dates: start: 20160425
  3. XARELTO [Suspect]
     Active Substance: RIVAROXABAN
     Indication: ATRIAL FIBRILLATION
     Route: 048
     Dates: start: 20160425
  4. METFIN [Concomitant]
     Active Substance: METFORMIN HYDROCHLORIDE
     Route: 048
     Dates: start: 20160425
  5. INSULIN DEGLUDEC [Concomitant]
     Active Substance: INSULIN DEGLUDEC
     Route: 065
     Dates: start: 20160425
  6. TORASEMID SANDOZ [Concomitant]
     Active Substance: TORSEMIDE
     Route: 048
     Dates: start: 20160425
  7. ESOMEPRAZOLE [Concomitant]
     Active Substance: ESOMEPRAZOLE
     Route: 048
     Dates: start: 20160425
  8. EPLERENONE. [Concomitant]
     Active Substance: EPLERENONE
     Route: 048
     Dates: start: 20160425
  9. COVERSUM [Concomitant]
     Active Substance: PERINDOPRIL
     Route: 048
     Dates: start: 20160425
  10. ATORVASTATIN [Concomitant]
     Active Substance: ATORVASTATIN
     Route: 048
     Dates: start: 20160425

REACTIONS (2)
  - Head injury [Fatal]
  - Brain contusion [Fatal]

NARRATIVE: CASE EVENT DATE: 20170214
